FAERS Safety Report 13626137 (Version 1)
Quarter: 2017Q2

REPORT INFORMATION
  Report Type: Spontaneous
  Country: US (occurrence: US)
  Receive Date: 20170531
  Receipt Date: 20170531
  Transmission Date: 20170830
  Serious: Yes (Other)
  Sender: FDA-Public Use
  Company Number: US-ASTELLAS-1214224

PATIENT
  Age: 59 Year
  Sex: Female

DRUGS (6)
  1. OMEPRAZOLE. [Concomitant]
     Active Substance: OMEPRAZOLE
  2. ONDANSETRON [Concomitant]
     Active Substance: ONDANSETRON
  3. LORAZEPAM. [Concomitant]
     Active Substance: LORAZEPAM
  4. TARCEVA [Suspect]
     Active Substance: ERLOTINIB HYDROCHLORIDE
     Indication: LUNG NEOPLASM MALIGNANT
     Route: 048
     Dates: end: 201303
  5. ALPRAZOLAM. [Concomitant]
     Active Substance: ALPRAZOLAM
  6. HYDROCODONE BITARTRATE AND ACETAMINOPHEN [Concomitant]
     Active Substance: ACETAMINOPHEN\HYDROCODONE BITARTRATE

REACTIONS (2)
  - Weight decreased [Recovered/Resolved]
  - Fatigue [Recovered/Resolved]

NARRATIVE: CASE EVENT DATE: 201303
